FAERS Safety Report 24117991 (Version 2)
Quarter: 2024Q3

REPORT INFORMATION
  Report Type: Spontaneous
  Country: JP (occurrence: JP)
  Receive Date: 20240722
  Receipt Date: 20240824
  Transmission Date: 20241017
  Serious: Yes (Hospitalization)
  Sender: ROCHE
  Company Number: JP-CHUGAI-2024010171

PATIENT
  Age: 82 Year
  Sex: Female
  Weight: 51 kg

DRUGS (8)
  1. ACTEMRA [Suspect]
     Active Substance: TOCILIZUMAB
     Indication: Rheumatoid arthritis
     Route: 065
     Dates: start: 201812
  2. PREDNISOLONE [Suspect]
     Active Substance: PREDNISOLONE
     Indication: Product used for unknown indication
     Route: 048
  3. AZULFIDINE [Concomitant]
     Active Substance: SULFASALAZINE
     Route: 048
     Dates: start: 201509
  4. IGURATIMOD [Concomitant]
     Active Substance: IGURATIMOD
     Route: 048
     Dates: start: 201612
  5. FEBUXOSTAT [Concomitant]
     Active Substance: FEBUXOSTAT
     Route: 048
  6. SODIUM FERROUS CITRATE [Concomitant]
     Active Substance: SODIUM FERROUS CITRATE
     Route: 048
  7. INFLUENZA VIRUS VACCINE [Concomitant]
     Active Substance: INFLUENZA VIRUS VACCINE
     Route: 065
     Dates: start: 2023
  8. COVID-19 VACCINE MRNA [Concomitant]
     Route: 065
     Dates: start: 2023

REACTIONS (3)
  - Haemorrhage [Recovering/Resolving]
  - Fungal rhinitis [Recovering/Resolving]
  - Immunodeficiency [Recovering/Resolving]

NARRATIVE: CASE EVENT DATE: 20231101
